FAERS Safety Report 11738205 (Version 1)
Quarter: 2015Q4

REPORT INFORMATION
  Report Type: Spontaneous
  Country: US (occurrence: US)
  Receive Date: 20151113
  Receipt Date: 20151113
  Transmission Date: 20160304
  Serious: Yes (Hospitalization)
  Sender: FDA-Public Use
  Company Number: US-PFIZER INC-2015387437

PATIENT
  Age: 57 Year
  Sex: Female
  Weight: 111 kg

DRUGS (3)
  1. COUMADIN [Concomitant]
     Active Substance: WARFARIN SODIUM
     Indication: MITRAL VALVE REPLACEMENT
     Dosage: BETWEEN 7.5MG OR 5MG , 1X/DAY
     Route: 048
     Dates: start: 2007
  2. TIKOSYN [Suspect]
     Active Substance: DOFETILIDE
     Indication: ATRIAL FIBRILLATION
     Dosage: 250 ?G, 2X/DAY
     Route: 048
     Dates: start: 2013, end: 201506
  3. TIKOSYN [Suspect]
     Active Substance: DOFETILIDE
     Dosage: 125 ?G, 2X/DAY
     Route: 048
     Dates: start: 201510

REACTIONS (3)
  - Headache [Not Recovered/Not Resolved]
  - Haemoglobin decreased [Recovered/Resolved]
  - Cerebral haemorrhage [Unknown]

NARRATIVE: CASE EVENT DATE: 20150603
